FAERS Safety Report 4442148-1 (Version None)
Quarter: 2004Q3

REPORT INFORMATION
  Report Type: 
  Country: None (occurrence: None)
  Receive Date: 20040903
  Receipt Date: 20040722
  Transmission Date: 20050211
  Serious: Yes (Other)
  Sender: FDA-Public Use
  Company Number: 2004UW15481

PATIENT
  Age: 78 Year
  Sex: Female
  Weight: 77.1115 kg

DRUGS (9)
  1. CRESTOR [Suspect]
     Indication: LIPIDS INCREASED
     Dosage: 20 MG PO
     Route: 048
  2. PROTONIX [Concomitant]
  3. BETAPACE [Concomitant]
  4. TRICOR [Concomitant]
  5. COUMADIN [Concomitant]
  6. PROCARDIA [Concomitant]
  7. MULTIVITAMIN [Concomitant]
  8. VITAMIN E [Concomitant]
  9. CALCIUM [Concomitant]

REACTIONS (4)
  - ABDOMINAL PAIN UPPER [None]
  - DIZZINESS [None]
  - DYSPNOEA [None]
  - HAEMORRHAGE [None]
